FAERS Safety Report 12324608 (Version 1)
Quarter: 2016Q2

REPORT INFORMATION
  Report Type: Report from Study
  Country: US (occurrence: US)
  Receive Date: 20160502
  Receipt Date: 20160502
  Transmission Date: 20160815
  Serious: No
  Sender: FDA-Public Use
  Company Number: US-ABBVIE-16P-163-1602588-00

PATIENT
  Sex: Male

DRUGS (1)
  1. ANDROGEL [Suspect]
     Active Substance: TESTOSTERONE
     Indication: BLOOD TESTOSTERONE DECREASED
     Dosage: 1 PUMP TO LEFT CHEST AND SHOULDER AND 1 PUMP TO RIGHT CHEST AND SHOULDER
     Route: 061
     Dates: start: 20160407

REACTIONS (3)
  - Drug administered at inappropriate site [Recovered/Resolved]
  - Incorrect dose administered [Unknown]
  - Inappropriate schedule of drug administration [Unknown]
